FAERS Safety Report 8850964 (Version 1)
Quarter: 2012Q4

REPORT INFORMATION
  Report Type: 
  Country: US (occurrence: US)
  Receive Date: 20121019
  Receipt Date: 20121019
  Transmission Date: 20130627
  Serious: Yes (Other)
  Sender: FDA-Public Use
  Company Number: US-AMGEN-USASP2012066083

PATIENT
  Age: 69 Year
  Sex: Female

DRUGS (2)
  1. PROLIA [Suspect]
     Indication: OSTEOPOROSIS POSTMENOPAUSAL
     Dosage: UNK
     Dates: start: 20120626
  2. TAMOXIFEN [Concomitant]

REACTIONS (8)
  - Pneumococcal infection [Unknown]
  - Dyspnoea [Not Recovered/Not Resolved]
  - Weight decreased [Unknown]
  - Laryngitis [Not Recovered/Not Resolved]
  - Speech disorder [Unknown]
  - Ear discomfort [Unknown]
  - Hearing impaired [Unknown]
  - Upper respiratory tract infection [Unknown]
